FAERS Safety Report 21124007 (Version 3)
Quarter: 2023Q1

REPORT INFORMATION
  Report Type: Spontaneous
  Country: US (occurrence: US)
  Receive Date: 20220725
  Receipt Date: 20230118
  Transmission Date: 20230418
  Serious: No
  Sender: FDA-Public Use
  Company Number: US-SA-SAC20220721000945

PATIENT
  Age: 46 Year
  Sex: Female

DRUGS (3)
  1. DUPIXENT [Suspect]
     Active Substance: DUPILUMAB
     Indication: Fungal infection
     Dosage: 600 MG, 1X
     Route: 058
     Dates: start: 202206, end: 202206
  2. DUPIXENT [Suspect]
     Active Substance: DUPILUMAB
     Dosage: 300 MG,OTHER
     Route: 058
     Dates: start: 2022
  3. ECONAZOLE [Concomitant]
     Active Substance: ECONAZOLE
     Indication: Fungal infection
     Dosage: UNK

REACTIONS (6)
  - COVID-19 [Unknown]
  - Injection site dryness [Unknown]
  - Injection site exfoliation [Unknown]
  - Injection site bruising [Unknown]
  - Injection site erythema [Unknown]
  - Unintentional use for unapproved indication [Unknown]

NARRATIVE: CASE EVENT DATE: 20220601
